FAERS Safety Report 4795818-X (Version None)
Quarter: 2005Q4

REPORT INFORMATION
  Report Type: 
  Country: None (occurrence: None)
  Receive Date: 20051007
  Receipt Date: 20050927
  Transmission Date: 20060501
  Serious: Yes (Other)
  Sender: FDA-Public Use
  Company Number: 2005135375

PATIENT
  Sex: Female

DRUGS (1)
  1. CALADRYL LOTION (CALAMINE, PRAMOXINE) [Suspect]
     Dosage: UNSPECIFIED AMOUNT ONCE, TOPICAL
     Route: 061

REACTIONS (1)
  - CONVULSION [None]
